FAERS Safety Report 16735424 (Version 1)
Quarter: 2019Q3

REPORT INFORMATION
  Report Type: Spontaneous
  Country: US (occurrence: US)
  Receive Date: 20190708
  Receipt Date: 20190708
  Transmission Date: 20191005
  Serious: Yes (Hospitalization)
  Sender: FDA-Public Use
  Company Number: None

PATIENT
  Age: 62 Year
  Sex: Male

DRUGS (3)
  1. ASPIRIN. [Concomitant]
     Active Substance: ASPIRIN
  2. AMBIEN [Concomitant]
     Active Substance: ZOLPIDEM TARTRATE
  3. REPATHA [Suspect]
     Active Substance: EVOLOCUMAB
     Indication: CEREBROVASCULAR DISORDER
     Dosage: ?          OTHER FREQUENCY:EVERY14DAYS;?
     Route: 058
     Dates: start: 20170215

REACTIONS (1)
  - Surgery [None]

NARRATIVE: CASE EVENT DATE: 20190705
